FAERS Safety Report 8673412 (Version 2)
Quarter: 2012Q4

REPORT INFORMATION
  Report Type: 
  Country: BR (occurrence: BR)
  Receive Date: 20120719
  Receipt Date: 20120828
  Transmission Date: 20130627
  Serious: Yes (Other)
  Sender: FDA-Public Use
  Company Number: PHHY2012BR053491

PATIENT
  Sex: Female

DRUGS (4)
  1. DIOVAN HCT [Suspect]
     Indication: HYPERTENSION
     Dosage: 1 DF (vals 160 mg, hydr 12.5 mg), daily
  2. DIOVAN HCT [Suspect]
     Dosage: 1 DF (vals 320 mg, hydr 12.5 mg), PRN
  3. DIOVAN HCT [Suspect]
     Dosage: 1 DF (vals 160 mg, hydr 12.5 mg), UNK
  4. CAPTOPRIL [Concomitant]
     Dosage: 1 DF
     Route: 060

REACTIONS (6)
  - Angina pectoris [Recovered/Resolved]
  - Chest pain [Recovering/Resolving]
  - Dyspnoea [Not Recovered/Not Resolved]
  - Blood pressure increased [Unknown]
  - Fatigue [Not Recovered/Not Resolved]
  - Drug ineffective [Unknown]
